FAERS Safety Report 8500985-8 (Version None)
Quarter: 2012Q3

REPORT INFORMATION
  Report Type: 
  Country: None (occurrence: None)
  Receive Date: 20120710
  Receipt Date: 20120703
  Transmission Date: 20120928
  Serious: Yes (Hospitalization)
  Sender: FDA-Public Use
  Company Number: AT-B.I. PHARMACEUTICALS,INC./RIDGEFIELD-2012-EU-03183GD

PATIENT
  Age: 85 Year
  Sex: Male

DRUGS (15)
  1. DABIGATRAN ETEXILATE [Suspect]
     Indication: CEREBROVASCULAR ACCIDENT PROPHYLAXIS
     Dosage: 220 MG
     Route: 048
     Dates: start: 20111101, end: 20120201
  2. DABIGATRAN ETEXILATE [Suspect]
     Indication: ATRIAL FIBRILLATION
  3. LOPERAMIDE [Suspect]
     Indication: DIARRHOEA
     Dosage: 4 MG
     Dates: start: 20120101
  4. LEUPROLIDE ACETATE [Suspect]
     Indication: PROSTATE CANCER METASTATIC
  5. XIPAMIDE [Concomitant]
     Dosage: 17.1429 MG
  6. PANTOPRAZOLE [Concomitant]
     Dosage: 40 MG
  7. BUDESONIDE [Concomitant]
     Dosage: 160 MCG
     Route: 055
  8. CEFUROXIME [Suspect]
     Indication: URINARY TRACT INFECTION
     Dates: start: 20120101
  9. SPIRONOLACTONE [Concomitant]
     Dosage: 25 MG
  10. THEOPHYLLINE [Concomitant]
     Dosage: 400 MG
  11. MAGNESIUM SULFATE [Concomitant]
     Dosage: 40 MG
  12. ESCITALOPRAM [Concomitant]
     Dosage: 10 MG
  13. ENALAPRIL MALEATE [Concomitant]
     Dosage: 2.5 MG
  14. FORMOTEROL FUMARATE [Concomitant]
     Dosage: 4.5 MCG
     Route: 055
  15. FLUVASTATIN SODIUM [Concomitant]
     Dosage: 40 MG

REACTIONS (5)
  - DIARRHOEA [None]
  - DRUG INTERACTION [None]
  - URINARY RETENTION [None]
  - URINARY TRACT INFECTION [None]
  - HAEMATURIA [None]
